FAERS Safety Report 5534668-3 (Version None)
Quarter: 2007Q4

REPORT INFORMATION
  Report Type: 
  Country: None (occurrence: None)
  Receive Date: 20071205
  Receipt Date: 20071127
  Transmission Date: 20080405
  Serious: Yes (Other)
  Sender: FDA-Public Use
  Company Number: US-SANOFI-SYNTHELABO-A03200706697

PATIENT
  Sex: Female

DRUGS (4)
  1. AVASTIN [Interacting]
     Dosage: UNK
     Route: 065
  2. FLUOROURACIL [Interacting]
     Dosage: UNK
     Route: 065
  3. LEUCOVORIN CALCIUM [Interacting]
     Dosage: UNK
     Route: 065
  4. ELOXATIN [Suspect]
     Indication: COLORECTAL CANCER
     Route: 042
     Dates: start: 20070101, end: 20070101

REACTIONS (3)
  - BLOOD BILIRUBIN INCREASED [None]
  - HAEMOGLOBIN DECREASED [None]
  - JAUNDICE [None]
